FAERS Safety Report 8139511-4 (Version None)
Quarter: 2012Q1

REPORT INFORMATION
  Report Type: 
  Country: None (occurrence: None)
  Receive Date: 20120215
  Receipt Date: 20120207
  Transmission Date: 20120608
  Serious: No
  Sender: FDA-Public Use
  Company Number: US-B.I. PHARMACEUTICALS,INC./RIDGEFIELD-2012-BP-02346BP

PATIENT
  Sex: Male

DRUGS (6)
  1. SPIRONOLACTONE [Concomitant]
     Indication: CARDIAC FAILURE CONGESTIVE
     Route: 048
  2. PRADAXA [Suspect]
     Indication: ATRIAL FIBRILLATION
     Dosage: 300 MG
     Route: 048
     Dates: start: 20110201
  3. SIMVASTATIN [Concomitant]
     Indication: BLOOD CHOLESTEROL INCREASED
     Dosage: 80 MG
     Route: 048
     Dates: start: 20080101
  4. DIGOXIN [Concomitant]
     Indication: ATRIAL FIBRILLATION
     Dosage: 0.125 MG
     Route: 048
     Dates: start: 20020101
  5. PLAVIX [Concomitant]
     Indication: PROPHYLAXIS
     Dates: start: 20070101
  6. CARVEDILOL [Concomitant]
     Indication: HYPERTENSION
     Dates: start: 20080101

REACTIONS (1)
  - ABNORMAL DREAMS [None]
